FAERS Safety Report 6277850-2 (Version None)
Quarter: 2009Q3

REPORT INFORMATION
  Report Type: 
  Country: None (occurrence: None)
  Receive Date: 20090722
  Receipt Date: 20090717
  Transmission Date: 20100115
  Serious: Yes (Other)
  Sender: FDA-Public Use
  Company Number: ES-BAYER-200925751GPV

PATIENT
  Age: 55 Year
  Sex: Female

DRUGS (3)
  1. NEXAVAR [Suspect]
     Indication: RENAL CELL CARCINOMA
     Route: 048
     Dates: start: 20090601
  2. MEDICATION FOR TREATMENT SYMPTOMS (NOS) [Concomitant]
  3. CORTICOSTEROIDS (NOS) [Concomitant]
     Dosage: SINCE RECENTLY (NOS)

REACTIONS (3)
  - AMNESIA [None]
  - CONFABULATION [None]
  - CONFUSIONAL STATE [None]
